FAERS Safety Report 5593224-1 (Version None)
Quarter: 2008Q1

REPORT INFORMATION
  Report Type: 
  Country: None (occurrence: None)
  Receive Date: 20080114
  Receipt Date: 20071228
  Transmission Date: 20080703
  Serious: No
  Sender: FDA-Public Use
  Company Number: 2007EU002164

PATIENT
  Sex: Female

DRUGS (3)
  1. PROTOPIC [Suspect]
     Indication: DERMATITIS ATOPIC
     Dosage: 0.03 %, BID, TOPICAL, 0.03 %, UID/QD, TOPICAL
     Route: 061
     Dates: start: 20050201, end: 20050701
  2. PROTOPIC [Suspect]
     Indication: DERMATITIS ATOPIC
     Dosage: 0.03 %, BID, TOPICAL, 0.03 %, UID/QD, TOPICAL
     Route: 061
     Dates: start: 20060216
  3. PROTOPIC [Suspect]
     Indication: DERMATITIS ATOPIC
     Dosage: 0.03 %, BID, TOPICAL, 0.03 %, UID/QD, TOPICAL
     Route: 061
     Dates: start: 20060101

REACTIONS (1)
  - SKIN PAPILLOMA [None]
